FAERS Safety Report 5606760-6 (Version None)
Quarter: 2008Q1

REPORT INFORMATION
  Report Type: 
  Country: None (occurrence: None)
  Receive Date: 20080125
  Receipt Date: 20080110
  Transmission Date: 20080703
  Serious: Yes (Hospitalization)
  Sender: FDA-Public Use
  Company Number: US022078

PATIENT
  Sex: Female

DRUGS (2)
  1. FENTANYL CITRATE [Suspect]
     Indication: PAIN
     Dosage: BUCCAL
     Route: 002
     Dates: start: 20070101, end: 20080105
  2. FENTANYL CITRATE [Suspect]
     Indication: RHEUMATOID ARTHRITIS
     Dosage: BUCCAL
     Route: 002
     Dates: start: 20070101, end: 20080105

REACTIONS (3)
  - DEHYDRATION [None]
  - PAIN [None]
  - VOMITING [None]
